FAERS Safety Report 24704781 (Version 1)
Quarter: 2024Q4

REPORT INFORMATION
  Report Type: Spontaneous
  Country: CN (occurrence: CN)
  Receive Date: 20241206
  Receipt Date: 20241206
  Transmission Date: 20250114
  Serious: Yes (Hospitalization)
  Sender: EMD SERONO INC
  Company Number: CN-Merck Healthcare KGaA-2024063151

PATIENT
  Age: 33 Year
  Sex: Female
  Weight: 48 kg

DRUGS (3)
  1. GONAL-F [Suspect]
     Active Substance: FOLLITROPIN
     Indication: Ovulation induction
     Dates: start: 20241013, end: 20241020
  2. GONAL-F [Suspect]
     Active Substance: FOLLITROPIN
     Dates: start: 20241021, end: 20241023
  3. LUVERIS [Suspect]
     Active Substance: LUTROPIN ALFA
     Indication: Ovulation induction
     Dates: start: 20241018, end: 20241025

REACTIONS (1)
  - Ovarian hyperstimulation syndrome [Recovering/Resolving]

NARRATIVE: CASE EVENT DATE: 20241113
